FAERS Safety Report 9886745 (Version 2)
Quarter: 2014Q1

REPORT INFORMATION
  Report Type: Spontaneous
  Country: DE (occurrence: DE)
  Receive Date: 20140210
  Receipt Date: 20140326
  Transmission Date: 20141002
  Serious: Yes (Other)
  Sender: FDA-Public Use
  Company Number: PHHY2014DE015612

PATIENT
  Age: 78 Year
  Sex: Male

DRUGS (2)
  1. RASILEZ HCT [Suspect]
     Dosage: 1 DF (300MG ALISKIREN/25MG HCT), QD
     Dates: start: 2012, end: 201402
  2. RASILEZ HCT [Suspect]
     Dosage: 1 DF (300MG ALISKIREN/25MG HCT), QD
     Dates: start: 20140214

REACTIONS (4)
  - Myelodysplastic syndrome [Unknown]
  - Refractory cytopenia with unilineage dysplasia [Unknown]
  - Blast cell count increased [Unknown]
  - Leukopenia [Unknown]
